FAERS Safety Report 6157102-1 (Version None)
Quarter: 2009Q2

REPORT INFORMATION
  Report Type: 
  Country: None (occurrence: None)
  Receive Date: 20090413
  Receipt Date: 20090402
  Transmission Date: 20091009
  Serious: Yes (Death)
  Sender: FDA-Public Use
  Company Number: GXKR2009GB04255

PATIENT

DRUGS (3)
  1. CEFTRIAXONE [Suspect]
  2. CIPROFLOXACIN [Suspect]
  3. LANSOPRAZOLE [Suspect]

REACTIONS (1)
  - CLOSTRIDIAL INFECTION [None]
